FAERS Safety Report 15407333 (Version 1)
Quarter: 2018Q3

REPORT INFORMATION
  Report Type: Spontaneous
  Country: US (occurrence: US)
  Receive Date: 20180920
  Receipt Date: 20180920
  Transmission Date: 20181010
  Serious: Yes (Hospitalization, Other)
  Sender: FDA-Public Use
  Company Number: US-PFIZER INC-2018375073

PATIENT
  Age: 63 Year
  Sex: Female
  Weight: 47.63 kg

DRUGS (1)
  1. DOCETAXEL. [Suspect]
     Active Substance: DOCETAXEL
     Indication: NEOPLASM MALIGNANT
     Dosage: 60MG, EVERY 3 WEEKS
     Route: 042
     Dates: start: 20180831, end: 20180831

REACTIONS (17)
  - Weight decreased [Unknown]
  - Gingival erythema [Unknown]
  - Neutrophil count increased [Unknown]
  - Dysphagia [Recovering/Resolving]
  - Hypersensitivity [Unknown]
  - Loss of personal independence in daily activities [Unknown]
  - Feeding disorder [Recovering/Resolving]
  - Oropharyngeal blistering [Unknown]
  - Oral mucosal blistering [Unknown]
  - Injection site swelling [Not Recovered/Not Resolved]
  - Oropharyngeal pain [Recovering/Resolving]
  - Feeling abnormal [Unknown]
  - Injection site erythema [Not Recovered/Not Resolved]
  - Gingival swelling [Recovering/Resolving]
  - Infection [Unknown]
  - Oral mucosal exfoliation [Recovering/Resolving]
  - Dehydration [Unknown]

NARRATIVE: CASE EVENT DATE: 20180901
